FAERS Safety Report 19155056 (Version 1)
Quarter: 2021Q2

REPORT INFORMATION
  Report Type: Spontaneous
  Country: ES (occurrence: ES)
  Receive Date: 20210419
  Receipt Date: 20210419
  Transmission Date: 20210717
  Serious: Yes (Other)
  Sender: FDA-Public Use
  Company Number: ES-TAKEDA-2021TUS023066

PATIENT
  Age: 74 Year
  Sex: Female

DRUGS (5)
  1. HIDROSALURETIL [Concomitant]
     Active Substance: HYDROCHLOROTHIAZIDE
     Indication: PRODUCT USED FOR UNKNOWN INDICATION
     Dosage: HALF 50 MG TABLET, QD
     Route: 065
  2. HIDROSALURETIL [Concomitant]
     Active Substance: HYDROCHLOROTHIAZIDE
     Dosage: HALF 50 MILLIGRAM TABLET A DAY
     Route: 065
  3. TRANXILIUM [Concomitant]
     Active Substance: CLORAZEPATE DIPOTASSIUM
     Indication: PRODUCT USED FOR UNKNOWN INDICATION
     Dosage: 10 MILLIGRAM
     Route: 065
  4. HYDREA [Suspect]
     Active Substance: HYDROXYUREA
     Indication: ESSENTIAL THROMBOCYTHAEMIA
     Dosage: TWO 500 MILLIGRAM TABLETS ON WEEKDAYS AND ONE 500 MILLIGRAM TABLET ON THE WEEKEND DAYS
     Route: 065
  5. XAGRID [Suspect]
     Active Substance: ANAGRELIDE HYDROCHLORIDE
     Indication: PRODUCT USED FOR UNKNOWN INDICATION
     Dosage: UNK
     Route: 065

REACTIONS (6)
  - Drug ineffective [Unknown]
  - Heart rate increased [Unknown]
  - Eye allergy [Unknown]
  - Vocal cord disorder [Unknown]
  - Rhinitis [Unknown]
  - Decreased immune responsiveness [Recovering/Resolving]
